FAERS Safety Report 8906976 (Version 1)
Quarter: 2012Q4

REPORT INFORMATION
  Report Type: 
  Country: US (occurrence: US)
  Receive Date: 20121114
  Receipt Date: 20121114
  Transmission Date: 20130627
  Serious: Yes (Hospitalization)
  Sender: FDA-Public Use
  Company Number: US-GLAXOSMITHKLINE-A0971677A

PATIENT
  Age: 49 Year
  Sex: Female
  Weight: 79 kg

DRUGS (9)
  1. BENLYSTA [Suspect]
     Indication: SYSTEMIC LUPUS ERYTHEMATOSUS
     Route: 042
     Dates: start: 20120307
  2. CELLCEPT [Concomitant]
     Dosage: 500MG Per day
     Dates: start: 19990101
  3. PLAQUENIL [Concomitant]
     Dosage: 200MG Per day
     Dates: start: 19990101
  4. LEVOTHYROXINE [Concomitant]
     Dosage: 150MCG Per day
  5. WARFARIN [Concomitant]
     Dates: start: 19990101
  6. WARFARIN [Concomitant]
  7. FUROSEMIDE [Concomitant]
     Dosage: 40MG Per day
  8. ZOLPIDEM [Concomitant]
     Dosage: 10MG Per day
  9. IMURAN [Concomitant]
     Dosage: 50MG Per day
     Dates: start: 19990101

REACTIONS (2)
  - Neoplasm malignant [Unknown]
  - Diarrhoea [Recovered/Resolved]
